FAERS Safety Report 22998347 (Version 2)
Quarter: 2024Q1

REPORT INFORMATION
  Report Type: Spontaneous
  Country: US (occurrence: US)
  Receive Date: 20230928
  Receipt Date: 20240220
  Transmission Date: 20240409
  Serious: Yes (Other)
  Sender: FDA-Public Use
  Company Number: US-ELI_LILLY_AND_COMPANY-US202309015189

PATIENT
  Age: 66 Year
  Sex: Female

DRUGS (3)
  1. VERZENIO [Suspect]
     Active Substance: ABEMACICLIB
     Indication: Breast cancer female
     Dosage: 100 MG, UNKNOWN
     Route: 065
     Dates: start: 20230912
  2. VERZENIO [Suspect]
     Active Substance: ABEMACICLIB
     Dosage: 100 MG, UNKNOWN, (IN THE MORNING)
     Route: 065
  3. VERZENIO [Suspect]
     Active Substance: ABEMACICLIB
     Dosage: 50 MG, UNKNOWN, (IN THE EVENING)
     Route: 065

REACTIONS (8)
  - White blood cell count decreased [Unknown]
  - Urine calcium increased [Unknown]
  - Nephrolithiasis [Unknown]
  - Dysuria [Unknown]
  - Constipation [Unknown]
  - Stomatitis [Unknown]
  - Diarrhoea [Unknown]
  - Neutropenia [Unknown]
